FAERS Safety Report 4418423-3 (Version None)
Quarter: 2004Q3

REPORT INFORMATION
  Report Type: 
  Country: None (occurrence: None)
  Receive Date: 20040809
  Receipt Date: 20040422
  Transmission Date: 20050211
  Serious: No
  Sender: FDA-Public Use
  Company Number: US-GLAXOSMITHKLINE-A0508057A

PATIENT
  Sex: Female

DRUGS (6)
  1. PAXIL CR [Suspect]
     Indication: DEPRESSION
     Dosage: 12.5MG PER DAY
     Route: 048
  2. ZOCOR [Concomitant]
  3. CLONAZEPAM [Concomitant]
  4. AVANDIA [Concomitant]
  5. SYNTHROID [Concomitant]
  6. UNKNOWN MEDICATION [Concomitant]

REACTIONS (1)
  - DIARRHOEA [None]
